FAERS Safety Report 9460688 (Version 1)
Quarter: 2013Q3

REPORT INFORMATION
  Report Type: Spontaneous
  Country: US (occurrence: US)
  Receive Date: 20130815
  Receipt Date: 20130815
  Transmission Date: 20140515
  Serious: Yes (Other)
  Sender: FDA-Public Use
  Company Number: BR-TMC-CABO-13002924

PATIENT
  Age: 68 Year
  Sex: Male

DRUGS (1)
  1. COMETRIQ [Suspect]
     Indication: PROSTATE CANCER
     Dosage: 140 MG, QD
     Route: 048
     Dates: start: 20130615

REACTIONS (1)
  - Visual acuity reduced [Unknown]
